FAERS Safety Report 9308119 (Version 2)
Quarter: 2013Q2

REPORT INFORMATION
  Report Type: Spontaneous
  Country: KR (occurrence: KR)
  Receive Date: 20130524
  Receipt Date: 20130612
  Transmission Date: 20140414
  Serious: Yes (Other)
  Sender: FDA-Public Use
  Company Number: KR-NAPPMUNDI-GBR-2013-0014025

PATIENT
  Age: 82 Year
  Sex: Female

DRUGS (2)
  1. NORSPAN PATCH [Suspect]
     Indication: PRODUCT USED FOR UNKNOWN INDICATION
     Dosage: 10 MCG, Q1H
     Route: 062
     Dates: start: 20130510, end: 20130511
  2. MACPERAN [Concomitant]
     Route: 042

REACTIONS (2)
  - Hyponatraemia [Unknown]
  - Pulse waveform abnormal [Unknown]
